FAERS Safety Report 13738940 (Version 2)
Quarter: 2018Q2

REPORT INFORMATION
  Report Type: Spontaneous
  Country: US (occurrence: US)
  Receive Date: 20170710
  Receipt Date: 20180627
  Transmission Date: 20180711
  Serious: Yes (Other)
  Sender: FDA-Public Use
  Company Number: US-SAOL THERAPEUTICS-2017SAO01043

PATIENT
  Age: 26 Year
  Sex: Female

DRUGS (1)
  1. COMPOUNDED BACLOFEN [Suspect]
     Active Substance: BACLOFEN
     Dosage: 200.3 ?G, \DAY
     Route: 037
     Dates: start: 20170518

REACTIONS (1)
  - Infection [Unknown]

NARRATIVE: CASE EVENT DATE: 20170524
